FAERS Safety Report 22106486 (Version 2)
Quarter: 2023Q2

REPORT INFORMATION
  Report Type: Spontaneous
  Country: CZ (occurrence: CZ)
  Receive Date: 20230317
  Receipt Date: 20230405
  Transmission Date: 20230721
  Serious: Yes (Death, Hospitalization, Other)
  Sender: FDA-Public Use
  Company Number: CZ-SA-SAC20230313001008

PATIENT
  Age: 74 Year
  Sex: Female

DRUGS (9)
  1. CABLIVI [Suspect]
     Active Substance: CAPLACIZUMAB-YHDP
     Indication: Thrombotic thrombocytopenic purpura
     Dosage: 10 MG, QD
     Route: 058
     Dates: start: 20230102, end: 20230114
  2. CABLIVI [Suspect]
     Active Substance: CAPLACIZUMAB-YHDP
     Dosage: 10 MG, QD
     Route: 058
     Dates: start: 20230117, end: 20230122
  3. VASOPRESSIN [Concomitant]
     Active Substance: VASOPRESSIN
     Dosage: UNK
     Dates: start: 20230102
  4. SODIUM BICARBONATE [Concomitant]
     Active Substance: SODIUM BICARBONATE
     Dosage: MASSIVE DOSES
     Route: 042
     Dates: start: 20230102
  5. OXYGEN [Concomitant]
     Active Substance: OXYGEN
     Dosage: 0.8
     Dates: start: 20230102
  6. BETOPTIC [Concomitant]
     Active Substance: BETAXOLOL HYDROCHLORIDE
     Dosage: 1-0-1
  7. METFORMIN [Concomitant]
     Active Substance: METFORMIN HYDROCHLORIDE
     Dosage: 850 1-0-0
  8. TONANDA [Concomitant]
     Dosage: 4/5/1.25 1-0-0
  9. BISOPROLOL FUMARATE [Concomitant]
     Active Substance: BISOPROLOL FUMARATE
     Dosage: 1-0-0

REACTIONS (14)
  - Multiple organ dysfunction syndrome [Fatal]
  - Duodenitis [Fatal]
  - C-reactive protein increased [Fatal]
  - Hyperbilirubinaemia [Fatal]
  - Hepatitis E virus test positive [Fatal]
  - Cardiac failure [Fatal]
  - Supraventricular tachycardia [Fatal]
  - Gastrointestinal haemorrhage [Fatal]
  - Hepatic failure [Fatal]
  - Myocardial infarction [Fatal]
  - Hypovolaemia [Fatal]
  - Transaminases abnormal [Fatal]
  - Haemoglobin decreased [Fatal]
  - Blood pressure decreased [Fatal]

NARRATIVE: CASE EVENT DATE: 20230108
